FAERS Safety Report 6661967-4 (Version None)
Quarter: 2010Q1

REPORT INFORMATION
  Report Type: 
  Country: None (occurrence: None)
  Receive Date: 20100331
  Receipt Date: 20091124
  Transmission Date: 20100710
  Serious: Yes (Life-Threatening, Other)
  Sender: FDA-Public Use
  Company Number: US-BRISTOL-MYERS SQUIBB COMPANY-14844880

PATIENT
  Age: 57 Year
  Sex: Male

DRUGS (4)
  1. ERBITUX [Suspect]
     Indication: COLORECTAL CANCER METASTATIC
     Dosage: RECHALLENGED ON 02NOV09
     Route: 042
     Dates: start: 20091026, end: 20091102
  2. BENADRYL [Concomitant]
     Indication: PREMEDICATION
     Dates: start: 20091026, end: 20091102
  3. DEXAMETHASONE [Concomitant]
     Indication: PREMEDICATION
     Dates: start: 20091026, end: 20091102
  4. RIMADYL [Concomitant]
     Indication: PREMEDICATION
     Dates: start: 20091026, end: 20091102

REACTIONS (1)
  - INFUSION RELATED REACTION [None]
